FAERS Safety Report 17473411 (Version 1)
Quarter: 2020Q1

REPORT INFORMATION
  Report Type: Report from Study
  Country: CA (occurrence: CA)
  Receive Date: 20200228
  Receipt Date: 20200228
  Transmission Date: 20200409
  Serious: Yes (Other)
  Sender: FDA-Public Use
  Company Number: CA-JNJFOC-20190625891

PATIENT
  Age: 53 Year
  Sex: Male
  Weight: 86.4 kg

DRUGS (1)
  1. SIMPONI [Suspect]
     Active Substance: GOLIMUMAB
     Indication: RHEUMATOID ARTHRITIS
     Route: 042
     Dates: start: 20190325

REACTIONS (1)
  - Abscess limb [Recovered/Resolved]

NARRATIVE: CASE EVENT DATE: 20190515
